FAERS Safety Report 9713718 (Version 3)
Quarter: 2013Q4

REPORT INFORMATION
  Report Type: Spontaneous
  Country: AR (occurrence: AR)
  Receive Date: 20131126
  Receipt Date: 20131218
  Transmission Date: 20140711
  Serious: Yes (Hospitalization)
  Sender: FDA-Public Use
  Company Number: AR-PFIZER INC-2013334311

PATIENT
  Sex: Male

DRUGS (4)
  1. SUTENT [Suspect]
     Indication: RENAL CELL CARCINOMA
     Dosage: 50 MG, 1X/DAY (SCHEME 4/2)
     Dates: start: 20130910, end: 20131114
  2. LOTRIAL [Concomitant]
     Dosage: UNK
  3. RIVOTRIL [Concomitant]
     Dosage: UNK
  4. ARTERIOSAN [Concomitant]
     Dosage: UNK

REACTIONS (5)
  - Cholelithiasis [Recovering/Resolving]
  - Decreased appetite [Recovering/Resolving]
  - Diarrhoea [Recovering/Resolving]
  - Vomiting [Recovering/Resolving]
  - Weight decreased [Recovering/Resolving]
